FAERS Safety Report 9738844 (Version 2)
Quarter: 2014Q1

REPORT INFORMATION
  Report Type: Spontaneous
  Country: US (occurrence: US)
  Receive Date: 20131209
  Receipt Date: 20140124
  Transmission Date: 20141002
  Serious: No
  Sender: FDA-Public Use
  Company Number: US-PFIZER INC-2013349833

PATIENT
  Age: 52 Year
  Sex: Female

DRUGS (13)
  1. LYRICA [Suspect]
     Dosage: UNK, 2X/DAY (STRENGTH: 75)
  2. NOVOLOG [Concomitant]
     Dosage: 56 IU, 3X/DAY
  3. LANTUS [Concomitant]
     Dosage: 56 IU, 1X/DAY (NIGHTLY)
  4. FLUOXETINE HYDROCHLORIDE [Concomitant]
     Dosage: 20 MG, 3X/DAY
  5. LEVETIRACETAM [Concomitant]
     Dosage: 1500 MG, 2X/DAY (750 MG 2 X 2 DAILY)
  6. BACLOFEN [Concomitant]
     Dosage: 15 MG, 3X/DAY (10 MG 1 1/2X 3DAILY)
  7. LOSARTAN POTASSIUM W/HYDROCHLOROTHIAZIDE [Concomitant]
     Dosage: 100-12.5, 1X DAILY
  8. PHENYTOIN SODIUM [Concomitant]
     Dosage: 200 MG, 3X/DAY (100 MG 2 X 3 DAILY)
  9. COMBIVENT [Concomitant]
     Dosage: UNK
     Route: 045
  10. TYLENOL [Concomitant]
     Dosage: 1000 MG, 3X/DAY (500 MG 2X 3 DAILY)
  11. MELATONIN [Concomitant]
     Dosage: 20 MG, 1X/DAY (10 MG 2 X 1 NIGHTLY)
  12. CENTRUM SILVER [Concomitant]
     Dosage: UNK, 1 X DAILY
  13. FISH OIL [Concomitant]
     Dosage: UNK

REACTIONS (1)
  - Hypoacusis [Unknown]
